FAERS Safety Report 6457771-2 (Version None)
Quarter: 2009Q4

REPORT INFORMATION
  Report Type: 
  Country: None (occurrence: None)
  Receive Date: 20091125
  Receipt Date: 20091109
  Transmission Date: 20100525
  Serious: Yes (Disabling)
  Sender: FDA-Public Use
  Company Number: BE-ASTRAZENECA-2009SE26121

PATIENT
  Sex: Female

DRUGS (1)
  1. MARCAINE [Suspect]
     Route: 042

REACTIONS (2)
  - MOBILITY DECREASED [None]
  - PAIN [None]
